FAERS Safety Report 6802012-7 (Version None)
Quarter: 2010Q2

REPORT INFORMATION
  Report Type: 
  Country: None (occurrence: None)
  Receive Date: 20100629
  Receipt Date: 20071024
  Transmission Date: 20101027
  Serious: Yes (Hospitalization, Other)
  Sender: FDA-Public Use
  Company Number: US-PFIZER INC-2006109326

PATIENT
  Sex: Male
  Weight: 108.9 kg

DRUGS (4)
  1. BEXTRA [Suspect]
     Indication: PAIN
     Dates: start: 20020601
  2. CELEBREX [Suspect]
     Indication: PAIN
     Dates: start: 20030601, end: 20040901
  3. VIOXX [Suspect]
     Indication: BACK PAIN
     Dates: start: 20000801
  4. LORTAB [Concomitant]
     Indication: PAIN
     Dates: start: 20000801, end: 20050101

REACTIONS (1)
  - PULMONARY EMBOLISM [None]
